FAERS Safety Report 22979788 (Version 2)
Quarter: 2023Q4

REPORT INFORMATION
  Report Type: Spontaneous
  Country: US (occurrence: US)
  Receive Date: 20230925
  Receipt Date: 20231026
  Transmission Date: 20240109
  Serious: No
  Sender: FDA-Public Use
  Company Number: US-PFIZER INC-PV202300159690

PATIENT
  Age: 70 Year
  Sex: Female
  Weight: 56.689 kg

DRUGS (1)
  1. RUXIENCE [Suspect]
     Active Substance: RITUXIMAB-PVVR
     Dosage: UNK

REACTIONS (11)
  - Abdominal pain upper [Unknown]
  - Anaemia [Unknown]
  - Splenomegaly [Unknown]
  - Asthenia [Unknown]
  - Myalgia [Unknown]
  - Weight decreased [Unknown]
  - Night sweats [Unknown]
  - Hot flush [Unknown]
  - Fatigue [Unknown]
  - Early satiety [Unknown]
  - Ischaemia [Unknown]

NARRATIVE: CASE EVENT DATE: 20230101
